FAERS Safety Report 15749035 (Version 1)
Quarter: 2018Q4

REPORT INFORMATION
  Report Type: Spontaneous
  Country: US (occurrence: US)
  Receive Date: 20181219
  Receipt Date: 20181219
  Transmission Date: 20190205
  Serious: No
  Sender: FDA-Public Use
  Company Number: None

PATIENT
  Age: 19 Year
  Weight: 68.49 kg

DRUGS (1)
  1. AIMOVIG [Suspect]
     Active Substance: ERENUMAB-AOOE
     Indication: MIGRAINE
     Route: 058
     Dates: start: 20181015

REACTIONS (5)
  - Headache [None]
  - Paraesthesia [None]
  - Vision blurred [None]
  - Head discomfort [None]
  - Fatigue [None]

NARRATIVE: CASE EVENT DATE: 20181022
